FAERS Safety Report 8428226-0 (Version None)
Quarter: 2012Q2

REPORT INFORMATION
  Report Type: 
  Country: None (occurrence: None)
  Receive Date: 20120611
  Receipt Date: 20120604
  Transmission Date: 20120825
  Serious: Yes (Other)
  Sender: FDA-Public Use
  Company Number: PHHY2011US40323

PATIENT
  Sex: Female

DRUGS (12)
  1. METOPROLOL TARTRATE [Suspect]
  2. CLONAZEPAM [Suspect]
  3. DIAZEPAM [Concomitant]
  4. VITAMIN TAB [Concomitant]
  5. LOPRESSOR [Suspect]
     Indication: MITRAL VALVE PROLAPSE
     Dosage: 50 MG
  6. SYNTHROID [Concomitant]
  7. BETA BLOCKING AGENTS [Suspect]
  8. BENZODIAZEPINES [Concomitant]
  9. KLONOPIN [Concomitant]
  10. XANAX [Concomitant]
  11. VALIUM [Concomitant]
     Dosage: 5 MG
  12. ZINAX [Concomitant]
     Dosage: 1 MG, BID

REACTIONS (13)
  - VISUAL ACUITY REDUCED [None]
  - DYSPNOEA [None]
  - WRONG TECHNIQUE IN DRUG USAGE PROCESS [None]
  - PANIC ATTACK [None]
  - RASH [None]
  - CARDIAC DISORDER [None]
  - HEART RATE INCREASED [None]
  - TREMOR [None]
  - ABNORMAL DREAMS [None]
  - BLOOD PRESSURE INCREASED [None]
  - DRUG INEFFECTIVE [None]
  - FEAR [None]
  - PANIC DISORDER [None]
